FAERS Safety Report 6667160-3 (Version None)
Quarter: 2010Q2

REPORT INFORMATION
  Report Type: 
  Country: None (occurrence: None)
  Receive Date: 20100405
  Receipt Date: 20100325
  Transmission Date: 20101027
  Serious: Yes (Hospitalization)
  Sender: FDA-Public Use
  Company Number: US-JNJFOC-20100102346

PATIENT
  Sex: Female
  Weight: 26 kg

DRUGS (2)
  1. INFLIXIMAB [Suspect]
     Indication: COLITIS ULCERATIVE
     Route: 042
  2. INFLIXIMAB [Suspect]
     Route: 042

REACTIONS (3)
  - ILEOSTOMY [None]
  - INTESTINAL RESECTION [None]
  - RESECTION OF RECTUM [None]
